FAERS Safety Report 18271404 (Version 1)
Quarter: 2020Q3

REPORT INFORMATION
  Report Type: Spontaneous
  Country: US (occurrence: US)
  Receive Date: 20200916
  Receipt Date: 20200916
  Transmission Date: 20201103
  Serious: No
  Sender: FDA-Public Use
  Company Number: US-ITALFARMACO SPA-2090776

PATIENT
  Age: 80 Year
  Sex: Female

DRUGS (6)
  1. CELECOXIB. [Concomitant]
     Active Substance: CELECOXIB
  2. ZYRTEC [Concomitant]
     Active Substance: CETIRIZINE HYDROCHLORIDE
  3. ALBUTEROL HFA [Concomitant]
     Active Substance: ALBUTEROL SULFATE
  4. ASPERCREME NOS [Concomitant]
     Active Substance: MENTHOL\TROLAMINE SALICYLATE
  5. TRIAZOLAM. [Concomitant]
     Active Substance: TRIAZOLAM
  6. TIGLUTIK [Suspect]
     Active Substance: RILUZOLE
     Indication: AMYOTROPHIC LATERAL SCLEROSIS
     Route: 048
     Dates: start: 20191028

REACTIONS (1)
  - Dizziness [Not Recovered/Not Resolved]
